FAERS Safety Report 25059840 (Version 1)
Quarter: 2025Q1

REPORT INFORMATION
  Report Type: Spontaneous
  Country: US (occurrence: US)
  Receive Date: 20250310
  Receipt Date: 20250310
  Transmission Date: 20250408
  Serious: No
  Sender: Haleon PLC
  Company Number: US-HALEON-2231747

PATIENT
  Age: 64 Year
  Sex: Female

DRUGS (1)
  1. SENSODYNE PRONAMEL CLINICAL ENAMEL STRENGTH DEEP CLEAN [Suspect]
     Active Substance: POTASSIUM NITRATE\SODIUM FLUORIDE
     Indication: Product used for unknown indication
     Dates: start: 20250305, end: 20250305

REACTIONS (1)
  - Hyperaesthesia teeth [Recovering/Resolving]

NARRATIVE: CASE EVENT DATE: 20250306
